FAERS Safety Report 4699110-3 (Version None)
Quarter: 2005Q2

REPORT INFORMATION
  Report Type: 
  Country: None (occurrence: None)
  Receive Date: 20050622
  Receipt Date: 20050609
  Transmission Date: 20051028
  Serious: Yes (Hospitalization)
  Sender: FDA-Public Use
  Company Number: 2005086991

PATIENT
  Age: 66 Year
  Sex: Male

DRUGS (6)
  1. GLIPIZIDE [Suspect]
     Indication: DIABETES MELLITUS
     Dosage: 10 MG (5 MG,2 IN 1 D)
     Dates: end: 20050318
  2. CIPROFLOXACIN [Suspect]
     Indication: ILL-DEFINED DISORDER
  3. ASPIRIN [Concomitant]
  4. ALLOPURINOL [Concomitant]
  5. LUCRIN (LEUPRORELIN ACETATE) [Concomitant]
  6. PERINDOPRIL (PERINDOPRIL) [Concomitant]

REACTIONS (7)
  - DIABETES MELLITUS [None]
  - DIARRHOEA [None]
  - DISEASE PROGRESSION [None]
  - GOUT [None]
  - HYPOGLYCAEMIA [None]
  - ORAL INTAKE REDUCED [None]
  - URINARY RETENTION [None]
